FAERS Safety Report 17237920 (Version 2)
Quarter: 2020Q1

REPORT INFORMATION
  Report Type: Spontaneous
  Country: US (occurrence: US)
  Receive Date: 20200106
  Receipt Date: 20200319
  Transmission Date: 20200409
  Serious: No
  Sender: FDA-Public Use
  Company Number: US-ASTRAZENECA-2020SE01956

PATIENT
  Sex: Male
  Weight: 4.5 kg

DRUGS (4)
  1. SYNAGIS [Suspect]
     Active Substance: PALIVIZUMAB
     Indication: TWIN PREGNANCY
     Route: 030
  2. ENALAPRIL [Concomitant]
     Active Substance: ENALAPRIL
  3. POLY-VI-SOL/IRON [Concomitant]
  4. SYNAGIS [Suspect]
     Active Substance: PALIVIZUMAB
     Indication: PREMATURE BABY
     Route: 030

REACTIONS (2)
  - Blood pressure increased [Unknown]
  - Cough [Unknown]
